FAERS Safety Report 12439436 (Version 3)
Quarter: 2016Q3

REPORT INFORMATION
  Report Type: Report from Study
  Country: JP (occurrence: JP)
  Receive Date: 20160606
  Receipt Date: 20160804
  Transmission Date: 20161109
  Serious: Yes (Death, Hospitalization)
  Sender: FDA-Public Use
  Company Number: JP-FERRINGPH-2015FE02378

PATIENT

DRUGS (11)
  1. DEGARELIX [Suspect]
     Active Substance: DEGARELIX
     Indication: PROSTATE CANCER METASTATIC
     Dosage: 240 MG, UNK
     Route: 058
     Dates: start: 20131118, end: 20131118
  2. DEGARELIX [Suspect]
     Active Substance: DEGARELIX
     Dosage: 80 MG, MONTHLY
     Route: 058
     Dates: start: 20131216, end: 20140407
  3. UFT [Suspect]
     Active Substance: TEGAFUR\URACIL
     Indication: PROSTATE CANCER METASTATIC
     Dosage: 300 MG, 1 TIME DAILY
     Route: 048
  4. OXINORM                            /00045603/ [Concomitant]
     Active Substance: OXYCODONE HYDROCHLORIDE
     Dosage: UNK
     Route: 048
     Dates: start: 20140526, end: 20140623
  5. DEGARELIX [Suspect]
     Active Substance: DEGARELIX
     Dosage: 80 MG, MONTHLY
     Route: 058
     Dates: start: 20140526, end: 20141215
  6. PROSEXOL [Suspect]
     Active Substance: ETHINYL ESTRADIOL
     Indication: PROSTATE CANCER METASTATIC
     Dosage: 1 MG, 3 TIMES DAILY
     Route: 048
     Dates: start: 20120702, end: 20140407
  7. PRECIPITATED CALCIUM CARBONATE [Concomitant]
     Active Substance: CALCIUM CARBONATE
     Route: 048
  8. LOXOPROFEN NA [Concomitant]
     Active Substance: LOXOPROFEN SODIUM
     Dosage: UNK
  9. FEBURIC [Concomitant]
     Active Substance: FEBUXOSTAT
     Dosage: UNK
     Dates: start: 20140802
  10. REBAMIPIDE [Concomitant]
     Active Substance: REBAMIPIDE
     Dosage: UNK
     Dates: start: 20140526
  11. OXYCONTIN [Concomitant]
     Active Substance: OXYCODONE HYDROCHLORIDE
     Dosage: UNK
     Route: 048
     Dates: start: 20140526, end: 20140624

REACTIONS (2)
  - Cardiac failure [Fatal]
  - Hyperuricaemia [Not Recovered/Not Resolved]

NARRATIVE: CASE EVENT DATE: 20140210
